FAERS Safety Report 4577690-6 (Version None)
Quarter: 2005Q1

REPORT INFORMATION
  Report Type: 
  Country: None (occurrence: None)
  Receive Date: 20050127
  Receipt Date: 20040825
  Transmission Date: 20050727
  Serious: No
  Sender: FDA-Public Use
  Company Number: USA040876463

PATIENT
  Age: 38 Year
  Sex: Male
  Weight: 65 kg

DRUGS (2)
  1. STRATTERA [Suspect]
     Indication: ATTENTION DEFICIT/HYPERACTIVITY DISORDER
     Dosage: 140 MG/L DAY
     Dates: start: 20040201
  2. ADDERALL 10 [Concomitant]

REACTIONS (3)
  - PRESCRIBED OVERDOSE [None]
  - STRESS [None]
  - WEIGHT DECREASED [None]
